FAERS Safety Report 5337660-7 (Version None)
Quarter: 2007Q2

REPORT INFORMATION
  Report Type: 
  Country: None (occurrence: None)
  Receive Date: 20070315
  Receipt Date: 20060606
  Transmission Date: 20071010
  Serious: Yes (Life-Threatening, Hospitalization)
  Sender: FDA-Public Use
  Company Number: PHEH2006US07380

PATIENT
  Age: 12 Year
  Sex: Male
  Weight: 28.6 kg

DRUGS (2)
  1. TRILEPTAL [Suspect]
     Indication: PARTIAL SEIZURES
     Dosage: 1050 MG, QD
     Dates: start: 20060415, end: 20060529
  2. LAMICTAL [Concomitant]

REACTIONS (3)
  - HYPONATRAEMIA [None]
  - LETHARGY [None]
  - STATUS EPILEPTICUS [None]
